FAERS Safety Report 24430494 (Version 1)
Quarter: 2024Q4

REPORT INFORMATION
  Report Type: Spontaneous
  Country: US (occurrence: US)
  Receive Date: 20241013
  Receipt Date: 20241013
  Transmission Date: 20250115
  Serious: No
  Sender: AMGEN
  Company Number: US-AMGEN-USASP2024200462

PATIENT

DRUGS (2)
  1. ENBREL [Suspect]
     Active Substance: ETANERCEPT
     Indication: Product used for unknown indication
     Dosage: UNK
     Route: 065
  2. HUMIRA [Suspect]
     Active Substance: ADALIMUMAB
     Indication: Ankylosing spondylitis
     Dosage: UNK
     Route: 058

REACTIONS (5)
  - Decreased immune responsiveness [Unknown]
  - Therapeutic product effect incomplete [Unknown]
  - Herpes zoster [Unknown]
  - Post herpetic neuralgia [Unknown]
  - Adverse reaction [Unknown]
